FAERS Safety Report 18600184 (Version 1)
Quarter: 2020Q4

REPORT INFORMATION
  Report Type: Spontaneous
  Country: US (occurrence: US)
  Receive Date: 20201210
  Receipt Date: 20201210
  Transmission Date: 20210114
  Serious: Yes (Death)
  Sender: FDA-Public Use
  Company Number: None

PATIENT
  Age: 68 Year
  Sex: Male
  Weight: 132 kg

DRUGS (3)
  1. VEKLURY [Suspect]
     Active Substance: REMDESIVIR
     Indication: COVID-19
     Route: 042
     Dates: start: 20201205, end: 20201208
  2. PHYTONADIONE. [Concomitant]
     Active Substance: PHYTONADIONE
     Dates: start: 20201209, end: 20201209
  3. WARFARIN [Concomitant]
     Active Substance: WARFARIN
     Dates: start: 20201204, end: 20201207

REACTIONS (3)
  - Cardio-respiratory arrest [None]
  - Haemodynamic instability [None]
  - International normalised ratio increased [None]

NARRATIVE: CASE EVENT DATE: 20201210
